FAERS Safety Report 6092501-8 (Version None)
Quarter: 2009Q1

REPORT INFORMATION
  Report Type: 
  Country: None (occurrence: None)
  Receive Date: 20090223
  Receipt Date: 20090223
  Transmission Date: 20090719
  Serious: Yes (Life-Threatening)
  Sender: FDA-Public Use
  Company Number: None

PATIENT
  Age: 47 Year
  Sex: Female
  Weight: 59.5 kg

DRUGS (6)
  1. TRUVADA [Suspect]
     Indication: HIV INFECTION
     Dosage: 200/300 MG QD ORALLY
     Route: 048
     Dates: start: 20081205, end: 20081230
  2. EFAVIRENZ [Suspect]
     Indication: HIV INFECTION
     Dosage: 600 MG QD ORALLY
     Route: 048
     Dates: start: 20081205, end: 20081230
  3. RIFAMPCIN [Concomitant]
  4. ISONIAZID [Concomitant]
  5. COTRIMOXAZOLE [Concomitant]
  6. FLAGYL [Concomitant]

REACTIONS (8)
  - ANAEMIA [None]
  - BREATH SOUNDS ABNORMAL [None]
  - HEPATIC ENCEPHALOPATHY [None]
  - HEPATITIS [None]
  - OEDEMA PERIPHERAL [None]
  - PLATELET COUNT INCREASED [None]
  - REFUSAL OF TREATMENT BY PATIENT [None]
  - RENAL IMPAIRMENT [None]
